FAERS Safety Report 24225109 (Version 1)
Quarter: 2024Q3

REPORT INFORMATION
  Report Type: Other
  Country: IN (occurrence: IN)
  Receive Date: 20240820
  Receipt Date: 20240820
  Transmission Date: 20241017
  Serious: Yes (Congenital Anomaly, Other)
  Sender: DEXCEL
  Company Number: IN-DEXPHARM-2024-2770

PATIENT
  Age: 27 Year
  Sex: Female

DRUGS (5)
  1. DEXAMETHASONE [Suspect]
     Active Substance: DEXAMETHASONE
     Dosage: DEXAMETHASONE 6 MG/DAY, TAPERED TO 1 MG/DAY AND STOPPED BY 32ND WEEK,
  2. HYDROXYCHLOROQUINE [Suspect]
     Active Substance: HYDROXYCHLOROQUINE
     Dosage: HCQ 300 MG OD
  3. ALBUTEROL [Suspect]
     Active Substance: ALBUTEROL
     Dosage: SALBUTAMOL 4 MG OD
  4. ASPIRIN [Suspect]
     Active Substance: ASPIRIN
     Dosage: ASPIRIN 75 MG OD
  5. VITAMIN D [Suspect]
     Active Substance: VITAMIN D NOS

REACTIONS (3)
  - Exposure during pregnancy [Unknown]
  - Oligohydramnios [Unknown]
  - Drug effective for unapproved indication [Unknown]
